FAERS Safety Report 24543761 (Version 1)
Quarter: 2024Q4

REPORT INFORMATION
  Report Type: Spontaneous
  Country: FR (occurrence: FR)
  Receive Date: 20241024
  Receipt Date: 20241024
  Transmission Date: 20250114
  Serious: Yes (Hospitalization)
  Sender: BOEHRINGER INGELHEIM
  Company Number: None

PATIENT
  Age: 70 Year
  Sex: Male
  Weight: 105 kg

DRUGS (11)
  1. JARDIANCE [Suspect]
     Active Substance: EMPAGLIFLOZIN
     Indication: Cardiomyopathy
     Route: 048
     Dates: start: 202312
  2. JARDIANCE [Suspect]
     Active Substance: EMPAGLIFLOZIN
     Indication: Chronic kidney disease
  3. AVODART [Concomitant]
     Active Substance: DUTASTERIDE
     Indication: Prostatic disorder
     Route: 048
  4. SILODOSIN [Concomitant]
     Active Substance: SILODOSIN
     Indication: Prostatic disorder
     Route: 048
  5. CRESTOR 10 mg, film coated tablet [Concomitant]
     Indication: Cardiovascular event prophylaxis
     Route: 048
  6. RILMENIDINE [Concomitant]
     Active Substance: RILMENIDINE
     Indication: Hypertension
     Route: 048
  7. PERINDOPRIL [Concomitant]
     Active Substance: PERINDOPRIL
     Indication: Hypertension
  8. LEVOTHYROXINE SODIUM [Concomitant]
     Active Substance: LEVOTHYROXINE SODIUM
     Indication: Hypothyroidism
     Route: 048
  9. DILTIAZEM HYDROCHLORIDE [Concomitant]
     Active Substance: DILTIAZEM HYDROCHLORIDE
     Indication: Hypertension
     Route: 048
  10. BISOPROLOL FUMARATE [Concomitant]
     Active Substance: BISOPROLOL FUMARATE
     Indication: Arrhythmia
     Route: 048
  11. XARELTO 20 mg, film coated tablet [Concomitant]
     Indication: Arrhythmia
     Route: 048

REACTIONS (1)
  - Fournier^s gangrene [Unknown]

NARRATIVE: CASE EVENT DATE: 20240928
